FAERS Safety Report 14646767 (Version 2)
Quarter: 2018Q2

REPORT INFORMATION
  Report Type: Spontaneous
  Country: US (occurrence: US)
  Receive Date: 20180316
  Receipt Date: 20180405
  Transmission Date: 20180711
  Serious: Yes (Other)
  Sender: FDA-Public Use
  Company Number: US-BAYER-2017-130019

PATIENT
  Age: 22 Year
  Sex: Female
  Weight: 131.52 kg

DRUGS (3)
  1. ORAL CONTRACEPTIVE NOS [Concomitant]
     Active Substance: UNSPECIFIED INGREDIENT
     Dosage: UNK
     Dates: start: 20080101, end: 20090801
  2. MIRENA [Suspect]
     Active Substance: LEVONORGESTREL
     Indication: UTERINE HAEMORRHAGE
     Dosage: 20 MCG/24HR, CONT
     Route: 015
     Dates: start: 20140425, end: 20150515
  3. ESSURE [Suspect]
     Active Substance: DEVICE
     Indication: FEMALE STERILISATION
     Dosage: UNK
     Dates: start: 20080821, end: 20160601

REACTIONS (33)
  - Uterine perforation [Unknown]
  - Abdominal pain lower [Unknown]
  - Dysmenorrhoea [Recovering/Resolving]
  - Dysgeusia [Unknown]
  - Female sexual dysfunction [Unknown]
  - Pruritus [Unknown]
  - Vision blurred [Unknown]
  - Device dislocation [Unknown]
  - Pelvic inflammatory disease [Unknown]
  - Tooth disorder [Unknown]
  - Genital haemorrhage [Recovering/Resolving]
  - Vaginal infection [Recovered/Resolved]
  - Weight increased [Recovered/Resolved]
  - Migraine [Unknown]
  - Vaginal discharge [Recovered/Resolved]
  - Constipation [Unknown]
  - Uterine haemorrhage [Unknown]
  - Back pain [Recovering/Resolving]
  - Abdominal distension [Recovered/Resolved]
  - Bladder disorder [Unknown]
  - Headache [Unknown]
  - Acne [None]
  - Device use issue [Unknown]
  - Dyspareunia [Recovering/Resolving]
  - Menorrhagia [Recovering/Resolving]
  - Urinary tract disorder [Unknown]
  - Device monitoring procedure not performed [Unknown]
  - Alopecia [Recovered/Resolved]
  - Pelvic pain [Recovering/Resolving]
  - Fatigue [Recovered/Resolved]
  - Vaginal haemorrhage [Recovering/Resolving]
  - Anxiety [None]
  - Depression [None]

NARRATIVE: CASE EVENT DATE: 20080821
